FAERS Safety Report 8885631 (Version 1)
Quarter: 2012Q4

REPORT INFORMATION
  Report Type: 
  Country: US (occurrence: US)
  Receive Date: 20121101
  Receipt Date: 20121101
  Transmission Date: 20130627
  Serious: No
  Sender: FDA-Public Use
  Company Number: US-PFIZER INC-2012268913

PATIENT
  Age: 56 Year
  Sex: Female
  Weight: 63.49 kg

DRUGS (2)
  1. ADVIL [Suspect]
     Indication: INFLAMMATION
     Dosage: 400 mg, 2x/day
     Route: 048
     Dates: start: 20121017, end: 20121018
  2. ADVIL [Suspect]
     Dosage: 400 mg, 2x/day
     Route: 048
     Dates: start: 20121021, end: 201210

REACTIONS (4)
  - Eye swelling [Recovered/Resolved]
  - Swollen tongue [Recovered/Resolved]
  - Lip swelling [Recovered/Resolved]
  - Swelling face [Recovered/Resolved]
